FAERS Safety Report 4614767-0 (Version None)
Quarter: 2005Q1

REPORT INFORMATION
  Report Type: 
  Country: None (occurrence: None)
  Receive Date: 20050322
  Receipt Date: 20050316
  Transmission Date: 20050727
  Serious: Yes (Other)
  Sender: FDA-Public Use
  Company Number: US-BRISTOL-MYERS SQUIBB COMPANY-12900999

PATIENT
  Age: 55 Year
  Sex: Male
  Weight: 51 kg

DRUGS (2)
  1. SERZONE [Suspect]
     Indication: ANXIETY
     Route: 048
  2. SERZONE [Suspect]
     Indication: DEPRESSION
     Route: 048

REACTIONS (2)
  - AMNESIA [None]
  - NEOPLASM MALIGNANT [None]
